FAERS Safety Report 8370304-9 (Version None)
Quarter: 2012Q2

REPORT INFORMATION
  Report Type: 
  Country: None (occurrence: None)
  Receive Date: 20120518
  Receipt Date: 20120125
  Transmission Date: 20120825
  Serious: No
  Sender: FDA-Public Use
  Company Number: US-ASTRAZENECA-2012SE09757

PATIENT
  Age: 67 Year
  Sex: Female

DRUGS (1)
  1. PRILOSEC OTC [Suspect]
     Route: 048
     Dates: start: 20120123, end: 20120124

REACTIONS (4)
  - PRURITUS GENERALISED [None]
  - PARAESTHESIA [None]
  - EXPIRED DRUG ADMINISTERED [None]
  - DRUG HYPERSENSITIVITY [None]
